FAERS Safety Report 25527733 (Version 2)
Quarter: 2025Q3

REPORT INFORMATION
  Report Type: Spontaneous
  Country: EU (occurrence: EU)
  Receive Date: 20250708
  Receipt Date: 20250723
  Transmission Date: 20251020
  Serious: Yes (Other)
  Sender: CELLTRION
  Company Number: None

PATIENT

DRUGS (10)
  1. BEVACIZUMAB [Suspect]
     Active Substance: BEVACIZUMAB
     Indication: Neovascular age-related macular degeneration
     Dates: start: 20220811, end: 20220811
  2. BEVACIZUMAB [Suspect]
     Active Substance: BEVACIZUMAB
     Dates: start: 20220923, end: 20220923
  3. BEVACIZUMAB [Suspect]
     Active Substance: BEVACIZUMAB
     Dates: start: 20221111, end: 20221111
  4. BEVACIZUMAB [Suspect]
     Active Substance: BEVACIZUMAB
     Dates: start: 20230210, end: 20230210
  5. BEVACIZUMAB [Suspect]
     Active Substance: BEVACIZUMAB
     Dates: start: 20230505, end: 20230505
  6. BEVACIZUMAB [Suspect]
     Active Substance: BEVACIZUMAB
     Dates: start: 20230811, end: 20230811
  7. LUCENTIS [Suspect]
     Active Substance: RANIBIZUMAB
     Indication: Neovascular age-related macular degeneration
     Dates: start: 20231013, end: 20231013
  8. LUCENTIS [Suspect]
     Active Substance: RANIBIZUMAB
     Dates: start: 20231110, end: 20231110
  9. LUCENTIS [Suspect]
     Active Substance: RANIBIZUMAB
     Dates: start: 20240405, end: 20240405
  10. LUCENTIS [Suspect]
     Active Substance: RANIBIZUMAB
     Dates: start: 20240614, end: 20240614

REACTIONS (3)
  - Macular degeneration [Not Recovered/Not Resolved]
  - Drug ineffective [Not Recovered/Not Resolved]
  - Intentional product use issue [Unknown]

NARRATIVE: CASE EVENT DATE: 20220811
